FAERS Safety Report 24400279 (Version 1)
Quarter: 2024Q4

REPORT INFORMATION
  Report Type: Spontaneous
  Country: US (occurrence: US)
  Receive Date: 20241005
  Receipt Date: 20241005
  Transmission Date: 20250115
  Serious: Yes (Other)
  Sender: GLENMARK
  Company Number: US-GLENMARK PHARMACEUTICALS-2024GMK094351

PATIENT

DRUGS (1)
  1. TELMISARTAN [Suspect]
     Active Substance: TELMISARTAN
     Indication: Blood pressure abnormal
     Dosage: 40 MILLIGRAM (TO BE TAKEN IN HALVES AT NIGHT)
     Route: 048

REACTIONS (7)
  - Blood pressure diastolic decreased [Unknown]
  - Lip swelling [Unknown]
  - Sputum increased [Unknown]
  - Cough [Unknown]
  - Wrong technique in product usage process [Unknown]
  - Product storage error [Unknown]
  - Expired product administered [Unknown]
